FAERS Safety Report 9292961 (Version 1)
Quarter: 2013Q2

REPORT INFORMATION
  Report Type: Spontaneous
  Country: GR (occurrence: GR)
  Receive Date: 20130516
  Receipt Date: 20130516
  Transmission Date: 20140414
  Serious: Yes (Other)
  Sender: FDA-Public Use
  Company Number: GR-AMGEN-GRCSP2013034065

PATIENT
  Age: 58 Year
  Sex: Female

DRUGS (9)
  1. PROLIA [Suspect]
     Indication: OSTEOPOROSIS
     Dosage: 60 MG, Q6MO
  2. THYROXINE [Concomitant]
  3. LEXOTANIL [Concomitant]
  4. INDERAL [Concomitant]
  5. COVERSYL                           /00790702/ [Concomitant]
  6. LIBRAX                             /00033301/ [Concomitant]
     Indication: PAIN
  7. PARIET [Concomitant]
  8. CALVIDIN [Concomitant]
  9. ANTIDEPRESSANTS [Concomitant]

REACTIONS (1)
  - Intestinal haemorrhage [Recovered/Resolved]
